FAERS Safety Report 17333138 (Version 2)
Quarter: 2020Q2

REPORT INFORMATION
  Report Type: Spontaneous
  Country: ES (occurrence: ES)
  Receive Date: 20200128
  Receipt Date: 20200630
  Transmission Date: 20200713
  Serious: Yes (Other)
  Sender: FDA-Public Use
  Company Number: ES-SUN PHARMACEUTICAL INDUSTRIES LTD-2020RR-234512

PATIENT
  Age: 21 Year
  Sex: Male

DRUGS (4)
  1. OLANZAPINE. [Suspect]
     Active Substance: OLANZAPINE
     Indication: PSYCHOTIC DISORDER
     Dosage: 10 MILLIGRAM
     Route: 048
     Dates: start: 20191211
  2. CLOPIXOL ACUFASE 50 MG [Suspect]
     Active Substance: ZUCLOPENTHIXOL ACETATE
     Indication: PSYCHOTIC DISORDER
     Dosage: 50 MG I.M ; IN TOTAL
     Route: 030
     Dates: start: 20191211, end: 20191211
  3. CLEXANE 40 MG 4000UI [Concomitant]
     Indication: PRODUCT USED FOR UNKNOWN INDICATION
     Dosage: 40 MILLIGRAM, DAILY
     Route: 058
     Dates: start: 20191211, end: 20191211
  4. PALIPERIDONA 6 MG 28 COMPRIMIDOS LIBERACION MODIFICADA [Suspect]
     Active Substance: PALIPERIDONE
     Indication: PSYCHOTIC DISORDER
     Dosage: 12 MILLIGRAM, DAILY
     Route: 048
     Dates: start: 20191212, end: 20191212

REACTIONS (1)
  - Extrapyramidal disorder [Unknown]

NARRATIVE: CASE EVENT DATE: 20191213
